FAERS Safety Report 13543423 (Version 2)
Quarter: 2017Q2

REPORT INFORMATION
  Report Type: Report from Study
  Country: None (occurrence: ES)
  Receive Date: 20170514
  Receipt Date: 20170516
  Transmission Date: 20170830
  Serious: Yes (Hospitalization, Other)
  Sender: FDA-Public Use
  Company Number: ES-ABBVIE-17K-144-1973445-00

PATIENT
  Age: 77 Year
  Sex: Female

DRUGS (1)
  1. DUODOPA [Suspect]
     Active Substance: CARBIDOPA\LEVODOPA
     Indication: PARKINSON^S DISEASE
     Route: 050
     Dates: start: 20101008

REACTIONS (3)
  - Depressed level of consciousness [Unknown]
  - Upper gastrointestinal haemorrhage [Recovered/Resolved]
  - Haemodynamic instability [Unknown]

NARRATIVE: CASE EVENT DATE: 201705
